FAERS Safety Report 20198859 (Version 1)
Quarter: 2021Q4

REPORT INFORMATION
  Report Type: Spontaneous
  Country: US (occurrence: None)
  Receive Date: 20211216
  Receipt Date: 20211216
  Transmission Date: 20220303
  Serious: No
  Sender: FDA-Public Use
  Company Number: None

PATIENT
  Age: 73 Year
  Sex: Male

DRUGS (1)
  1. LISINOPRIL [Suspect]
     Active Substance: LISINOPRIL
     Indication: Hypertension
     Dosage: FREQUENCY : DAILY;?
     Route: 048
     Dates: start: 20110113, end: 20211213

REACTIONS (5)
  - Pharyngeal swelling [None]
  - Dysphagia [None]
  - Respiratory syncytial virus infection [None]
  - Angioedema [None]
  - Upper respiratory tract infection [None]

NARRATIVE: CASE EVENT DATE: 20211212
